FAERS Safety Report 26084349 (Version 4)
Quarter: 2025Q4

REPORT INFORMATION
  Report Type: Spontaneous
  Country: JP (occurrence: JP)
  Receive Date: 20251124
  Receipt Date: 20251214
  Transmission Date: 20260118
  Serious: Yes (Other)
  Sender: PFIZER
  Company Number: JP-PFIZER INC-PV202500137369

PATIENT
  Age: 7 Decade
  Sex: Female
  Weight: 43 kg

DRUGS (8)
  1. PACLITAXEL [Suspect]
     Active Substance: PACLITAXEL
     Indication: Sarcomatoid carcinoma of the lung
     Dosage: 289 MG, EVERY 3 WEEKS (200 MG/M2, CHEMO OF ONE CYCLE (A TOTAL OF 2 INFS; 80% REDUCTION ON DAY 22)
     Route: 042
     Dates: start: 202101, end: 2021
  2. PACLITAXEL [Suspect]
     Active Substance: PACLITAXEL
     Indication: Metastases to central nervous system
  3. IPILIMUMAB [Suspect]
     Active Substance: IPILIMUMAB
     Indication: Sarcomatoid carcinoma of the lung
     Dosage: 43 MG (FREQ:6 WK; 43 MG (1 MG/KG), TWO CYCLES (IPILIMUMAB INTO 2)
     Route: 042
     Dates: start: 202101, end: 202103
  4. IPILIMUMAB [Suspect]
     Active Substance: IPILIMUMAB
     Indication: Metastases to central nervous system
  5. NIVOLUMAB [Suspect]
     Active Substance: NIVOLUMAB
     Indication: Sarcomatoid carcinoma of the lung
     Dosage: 360 MG, EVERY 3 WEEKS (360 MG/BODY, TWO CYCLES (NIVOLUMAB INTO 4)
     Route: 042
     Dates: start: 202101, end: 202103
  6. NIVOLUMAB [Suspect]
     Active Substance: NIVOLUMAB
     Indication: Metastases to central nervous system
  7. CARBOPLATIN [Suspect]
     Active Substance: CARBOPLATIN
     Indication: Sarcomatoid carcinoma of the lung
     Dosage: 530 MG, EVERY 3 WEEKS (AUC6, CHEMO OF ONE CYCLE (A TOTAL OF 2 INFS.; 80% REDUCTION ON DAY 22)
     Route: 042
     Dates: start: 202101, end: 2021
  8. CARBOPLATIN [Suspect]
     Active Substance: CARBOPLATIN
     Indication: Metastases to central nervous system

REACTIONS (2)
  - Hepatotoxicity [Recovered/Resolved]
  - Neutropenia [Recovered/Resolved]

NARRATIVE: CASE EVENT DATE: 20210101
